FAERS Safety Report 8588359-5 (Version None)
Quarter: 2012Q3

REPORT INFORMATION
  Report Type: 
  Country: None (occurrence: None)
  Receive Date: 20120813
  Receipt Date: 20120801
  Transmission Date: 20120928
  Serious: Yes (Hospitalization, Other)
  Sender: FDA-Public Use
  Company Number: US-BAYER-2012-077789

PATIENT
  Age: 16 Year
  Sex: Female

DRUGS (28)
  1. PRIVIGEN [Concomitant]
     Dosage: 100 G, ONCE A MONTH OVER 2 DAYS
     Route: 042
  2. REGLAN [Concomitant]
     Indication: HEADACHE
  3. PRILOSEC [Concomitant]
  4. PHENERGAN HCL [Concomitant]
     Dosage: 25 MG, HS
     Route: 048
  5. XOPENEX [Concomitant]
     Dosage: 1.25 VIAL/AS NEEDED 3-4 TIMES A DAY
  6. DHE [DIHYDROERGOTAMINE MESILATE] [Concomitant]
     Indication: HEADACHE
  7. OMEPRAZOLE [Concomitant]
     Dosage: 20 MG, BID
  8. MIRALAX [Concomitant]
     Dosage: 8.5 GM/ AS NEEDED 2-3 TIMES A DAY
     Route: 048
  9. CEPROZIL [Concomitant]
     Dosage: 500 MG, UNK
  10. FLUTICASONE PROPIONATE [Concomitant]
  11. CELEXA [Concomitant]
  12. TOPAMAX [Concomitant]
     Dosage: 25 MG, HOUR OF SLEEP
     Route: 048
  13. CELL CEPT [Concomitant]
     Dosage: 500 MG, EVERY 12 HOURS
     Route: 048
  14. PREDNISONE TAB [Concomitant]
     Dosage: 10 MG, UNK
  15. ZOFRAN [Concomitant]
     Dosage: 4 MG, 2-3 TIMES A DAY
     Route: 048
  16. ATROVENT [Concomitant]
     Dosage: 1 VIAL/AS NEEDED 2 TIMES A DAY
  17. IMITREX [Concomitant]
     Dosage: 25 MG, UNK
  18. ELAVIL [Concomitant]
  19. AMITRIPTYLINE HCL [Concomitant]
     Indication: SLEEP DISORDER
     Dosage: 100 MG, HS
     Route: 048
  20. CITALOPRAM HYDROBROMIDE [Concomitant]
     Dosage: 20 MG, QD
     Route: 048
  21. NEURONTIN [Concomitant]
     Dosage: 800 MG, BID
  22. DIAMOX [Concomitant]
     Dosage: 250 MG, EVERY 12 HOURS WITH INFUSION
     Route: 048
  23. CIPROFLOXACIN [Concomitant]
     Dosage: 500 MG, UNK
  24. YAZ [Suspect]
     Dosage: UNK
     Dates: start: 20091201, end: 20100401
  25. ACETAMINOPHEN-COD NUMBER 3 [Concomitant]
     Dosage: 20 MG, UNK
  26. FLUTICASONE PROPIONATE/SALMETEROL [Concomitant]
     Dosage: 1 PUFF(S), BID
     Route: 045
  27. NEXIUM [Concomitant]
     Dosage: 40 MG, BID
     Route: 048
  28. ZOMIG [Concomitant]
     Dosage: 2.5 MG, UNK

REACTIONS (8)
  - JUGULAR VEIN THROMBOSIS [None]
  - PAIN [None]
  - PULMONARY EMBOLISM [None]
  - EMOTIONAL DISTRESS [None]
  - GENERAL PHYSICAL HEALTH DETERIORATION [None]
  - ANXIETY [None]
  - VENA CAVA THROMBOSIS [None]
  - INJURY [None]
